FAERS Safety Report 9595165 (Version 2)
Quarter: 2013Q4

REPORT INFORMATION
  Report Type: Spontaneous
  Country: US (occurrence: US)
  Receive Date: 20131004
  Receipt Date: 20131216
  Transmission Date: 20140711
  Serious: Yes (Hospitalization)
  Sender: FDA-Public Use
  Company Number: US-BAYER-2013-119413

PATIENT
  Age: 23 Year
  Sex: Female

DRUGS (6)
  1. GIANVI [Suspect]
  2. YASMIN [Suspect]
  3. ALBUTEROL [Concomitant]
  4. ATROVENT [Concomitant]
  5. ROCEPHIN [Concomitant]
  6. AZITHROMYCIN [Concomitant]

REACTIONS (5)
  - Pulmonary embolism [None]
  - Injury [None]
  - Pain [None]
  - Emotional distress [None]
  - Pain [None]
